FAERS Safety Report 12299423 (Version 1)
Quarter: 2016Q2

REPORT INFORMATION
  Report Type: Spontaneous
  Country: FR (occurrence: FR)
  Receive Date: 20160425
  Receipt Date: 20160425
  Transmission Date: 20160815
  Serious: Yes (Life-Threatening, Disabling, Other)
  Sender: FDA-Public Use
  Company Number: FR-ABBVIE-16K-056-1612128-00

PATIENT
  Age: 40 Year
  Sex: Male

DRUGS (1)
  1. HUMIRA [Suspect]
     Active Substance: ADALIMUMAB
     Indication: COLITIS ULCERATIVE
     Route: 058

REACTIONS (6)
  - Coma [Recovered/Resolved with Sequelae]
  - Splenic infection [Unknown]
  - Tuberculosis [Unknown]
  - Central nervous system infection [Unknown]
  - Lung infection [Unknown]
  - Cryptococcosis [Unknown]
